FAERS Safety Report 16349220 (Version 2)
Quarter: 2019Q2

REPORT INFORMATION
  Report Type: Spontaneous
  Country: NL (occurrence: DE)
  Receive Date: 20190523
  Receipt Date: 20190627
  Transmission Date: 20190711
  Serious: Yes (Other)
  Sender: FDA-Public Use
  Company Number: DE-FRESENIUS KABI-FK201905734

PATIENT
  Age: 82 Year
  Sex: Male
  Weight: 94 kg

DRUGS (5)
  1. CIPROFLOXACIN. [Suspect]
     Active Substance: CIPROFLOXACIN
     Indication: ASTHMA
  2. CIPROFLOXACIN. [Suspect]
     Active Substance: CIPROFLOXACIN
     Indication: BRONCHITIS
     Dosage: STARTING WITH 250 MG, IN 2015 NOT EFFICIENT ANYMORE, INCREASED TO 500 MG OVER SEVERAL YEARS IN CASE
     Route: 048
     Dates: start: 2012, end: 2017
  3. MOXIFLOXACIN (MANUFACTURER UNKNOWN) [Suspect]
     Active Substance: MOXIFLOXACIN
     Indication: PRODUCT USED FOR UNKNOWN INDICATION
     Dosage: STARTING WITH 250 MG 2015 NOT EFFICIENT ANYMORE, INCREASED TO 500 MG
     Route: 065
     Dates: start: 2012, end: 2017
  4. CIPROFLOXACIN. [Suspect]
     Active Substance: CIPROFLOXACIN
     Indication: PNEUMONIA
  5. METFORMIN [Concomitant]
     Active Substance: METFORMIN HYDROCHLORIDE
     Indication: TYPE 2 DIABETES MELLITUS
     Route: 065

REACTIONS (9)
  - Gait disturbance [Recovered/Resolved with Sequelae]
  - Diabetic neuropathy [Recovered/Resolved with Sequelae]
  - Joint swelling [Recovered/Resolved with Sequelae]
  - Tendon injury [Recovered/Resolved]
  - Paraesthesia [Recovered/Resolved with Sequelae]
  - Tenotomy [Unknown]
  - Muscle disorder [Recovered/Resolved with Sequelae]
  - Tendon discomfort [Recovered/Resolved with Sequelae]
  - Tendon rupture [Recovered/Resolved with Sequelae]

NARRATIVE: CASE EVENT DATE: 2016
